FAERS Safety Report 22191238 (Version 1)
Quarter: 2023Q2

REPORT INFORMATION
  Report Type: Spontaneous
  Country: US (occurrence: US)
  Receive Date: 20230410
  Receipt Date: 20230410
  Transmission Date: 20230721
  Serious: Yes (Other)
  Sender: FDA-Public Use
  Company Number: US-GLAXOSMITHKLINE-US2023048628

PATIENT

DRUGS (1)
  1. BENLYSTA [Suspect]
     Active Substance: BELIMUMAB
     Indication: Systemic lupus erythematosus
     Dosage: 200 MG
     Route: 065
     Dates: start: 20230319, end: 20230326

REACTIONS (2)
  - Injection site pain [Not Recovered/Not Resolved]
  - Injection site vesicles [Unknown]

NARRATIVE: CASE EVENT DATE: 20230319
